FAERS Safety Report 7291169-2 (Version None)
Quarter: 2011Q1

REPORT INFORMATION
  Report Type: 
  Country: None (occurrence: None)
  Receive Date: 20110202
  Receipt Date: 20110125
  Transmission Date: 20110831
  Serious: Yes (Hospitalization)
  Sender: FDA-Public Use
  Company Number: 1000018528

PATIENT
  Age: 80 Year
  Sex: Male

DRUGS (4)
  1. NEBIVOLOL (NEBIVOLOL HYDROCHLORIDE) [Suspect]
     Indication: CARDIAC FAILURE
     Dosage: 5 MG (5 MG, 1 IN 1 D), ORAL
     Route: 048
     Dates: start: 20101030, end: 20101124
  2. HALDOL [Suspect]
     Indication: AGITATION
     Dosage: ORAL
     Route: 048
     Dates: start: 20101030, end: 20101109
  3. ALLOPURINOL [Suspect]
     Indication: GOUT
     Dosage: 300 MG (300 MG, 1 IN 1 D), ORAL
     Route: 048
     Dates: end: 20101124
  4. RASILEZ (ALISKIREN) [Suspect]
     Indication: CARDIAC FAILURE
     Dosage: 150 MG (150 MG, 1 IN 1 D), ORAL
     Route: 048
     Dates: start: 20101031, end: 20101124

REACTIONS (2)
  - BONE MARROW FAILURE [None]
  - AGRANULOCYTOSIS [None]
